FAERS Safety Report 4956815-4 (Version None)
Quarter: 2006Q1

REPORT INFORMATION
  Report Type: 
  Country: None (occurrence: None)
  Receive Date: 20060323
  Receipt Date: 20060307
  Transmission Date: 20060701
  Serious: Yes (Other)
  Sender: FDA-Public Use
  Company Number: CIP06000411

PATIENT
  Age: 24 Year
  Sex: Female

DRUGS (5)
  1. RISEDRONATE SODIUM [Suspect]
     Indication: OSTEOPOROSIS
     Dosage: 2.5 MG DAILY, ORAL
     Route: 048
     Dates: start: 20060114, end: 20060209
  2. STOGAR (LAFUTIDINE) [Suspect]
     Indication: ULCER
     Dosage: 20 MG, ORAL
     Route: 048
     Dates: start: 20060114, end: 20060209
  3. ALFAROL (ALFACALCIDOL) [Suspect]
     Indication: OSTEOPOROSIS
     Dosage: 1 UG, ORAL
     Route: 048
     Dates: start: 20060201, end: 20060209
  4. GASTROM (ECABET MONOSODIUM) [Suspect]
     Indication: ULCER
     Dosage: 3 G, ORAL
     Route: 048
     Dates: start: 20060114, end: 20060209
  5. PREDNISOLONE [Concomitant]

REACTIONS (5)
  - GRANULOCYTOPENIA [None]
  - LEUKOPENIA [None]
  - LYMPHOCYTE COUNT INCREASED [None]
  - LYMPHOCYTE PERCENTAGE DECREASED [None]
  - NEUTROPENIA [None]
